FAERS Safety Report 8586049-6 (Version None)
Quarter: 2012Q3

REPORT INFORMATION
  Report Type: 
  Country: None (occurrence: None)
  Receive Date: 20120730
  Receipt Date: 20120717
  Transmission Date: 20120928
  Serious: No
  Sender: FDA-Public Use
  Company Number: 7130546

PATIENT
  Age: 87 Year
  Sex: Female

DRUGS (7)
  1. LEVOTHYROXINE SODIUM [Suspect]
     Indication: HYPOTHYROIDISM
     Dosage: 1 DF (1 DF IN 1 D), ORAL, LONG TIME AGO
     Route: 048
  2. SINTROM [Suspect]
     Indication: ATRIAL FIBRILLATION
     Dosage: 0.25 DF (0.25 DF, CYCLICAL), ORAL, LONG TIME AGO, ONGOING (3 DAYS OUT OF 4)
     Route: 048
  3. HYDROCHLOROTHIAZIDE [Suspect]
     Indication: CARDIAC FAILURE
     Dosage: 1 DF (1 DF, 1 IN 1 D), ORAL, LONG TIME AGO
     Route: 048
  4. LYRICA [Suspect]
     Indication: PRODUCT USED FOR UNKNOWN INDICATION
     Dosage: 2 DF (2 DF, 1 IN 1 D), ORAL, LONG TIME AGO
     Route: 048
  5. FUROSEMIDE [Suspect]
     Indication: CARDIAC FAILURE
     Dosage: 1 DF (1 DF, 1 IN 1 D), ORAL, A LONG TIME AGO
     Route: 048
  6. NEXIUM [Suspect]
     Indication: PRODUCT USED FOR UNKNOWN INDICATION
     Dosage: 1 DF (1 DF, 1 IN 1 D), ORAL, LONG TIME
     Route: 048
  7. HEMIGOXINE (DIGOXIN) (DIGOXINE) [Suspect]
     Dosage: 1 DF (1 DF, 1 IN D), ORAL, A LONG TIME AGO
     Route: 048
     Dates: end: 20120417

REACTIONS (3)
  - BRADYCARDIA [None]
  - CEREBRAL HYPOPERFUSION [None]
  - DECREASED APPETITE [None]
